FAERS Safety Report 9741932 (Version 2)
Quarter: 2015Q4

REPORT INFORMATION
  Report Type: Report from Study
  Country: US (occurrence: US)
  Receive Date: 20131210
  Receipt Date: 20151026
  Transmission Date: 20160305
  Serious: Yes (Hospitalization)
  Sender: FDA-Public Use
  Company Number: US-ROCHE-1312936

PATIENT
  Age: 90 Year
  Sex: Female

DRUGS (2)
  1. LUCENTIS [Suspect]
     Active Substance: RANIBIZUMAB
     Indication: NEOVASCULAR AGE-RELATED MACULAR DEGENERATION
  2. LUCENTIS [Suspect]
     Active Substance: RANIBIZUMAB
     Indication: NEOVASCULAR AGE-RELATED MACULAR DEGENERATION
     Dosage: LAST DOSE ON 18/NOOV/2013
     Route: 050

REACTIONS (8)
  - Asthenia [Unknown]
  - Fall [Unknown]
  - Hand fracture [Unknown]
  - Stress [Unknown]
  - Disorientation [Unknown]
  - Head injury [Unknown]
  - Contusion [Unknown]
  - Ocular hyperaemia [Unknown]

NARRATIVE: CASE EVENT DATE: 20131127
